FAERS Safety Report 4731061-8 (Version None)
Quarter: 2005Q3

REPORT INFORMATION
  Report Type: 
  Country: None (occurrence: None)
  Receive Date: 20050726
  Receipt Date: 20040326
  Transmission Date: 20060218
  Serious: Yes (Life-Threatening, Hospitalization)
  Sender: FDA-Public Use
  Company Number: 04GER0087

PATIENT
  Sex: Male

DRUGS (5)
  1. INJ TIROFIBAN HCL(INJECTION) [Suspect]
     Indication: CATHETERISATION CARDIAC
     Dates: start: 20040325
  2. AGGRASTAT [Suspect]
     Dosage: N/A, INTRAVENOUS
     Route: 042
     Dates: start: 20040325
  3. ASPIRIN [Concomitant]
  4. CLOPIDOGREL BISULFATE [Concomitant]
  5. HEPARIN [Concomitant]

REACTIONS (2)
  - CATHETER SITE HAEMORRHAGE [None]
  - THROMBOCYTOPENIA [None]
